FAERS Safety Report 24535704 (Version 3)
Quarter: 2024Q4

REPORT INFORMATION
  Report Type: Spontaneous
  Country: US (occurrence: US)
  Receive Date: 20241022
  Receipt Date: 20241121
  Transmission Date: 20250114
  Serious: No
  Sender: PFIZER
  Company Number: US-PFIZER INC-PV202400136565

PATIENT
  Age: 38 Year
  Sex: Female

DRUGS (2)
  1. TIVDAK [Suspect]
     Active Substance: TISOTUMAB VEDOTIN-TFTV
     Dosage: 180 MG, EVERY 3 WEEKS
  2. TIVDAK [Suspect]
     Active Substance: TISOTUMAB VEDOTIN-TFTV
     Dosage: 40 MG

REACTIONS (1)
  - Neoplasm progression [Unknown]
